FAERS Safety Report 21187387 (Version 1)
Quarter: 2022Q3

REPORT INFORMATION
  Report Type: Spontaneous
  Country: US (occurrence: US)
  Receive Date: 20220808
  Receipt Date: 20220808
  Transmission Date: 20221027
  Serious: No
  Sender: FDA-Public Use
  Company Number: US-BIOGEN-2022BI01145418

PATIENT
  Sex: Female

DRUGS (7)
  1. TECFIDERA [Suspect]
     Active Substance: DIMETHYL FUMARATE
     Indication: Multiple sclerosis
     Dosage: STARTING DOSE
     Route: 050
     Dates: start: 2016, end: 2016
  2. TECFIDERA [Suspect]
     Active Substance: DIMETHYL FUMARATE
     Dosage: MAINTENANCE DOSE
     Route: 050
     Dates: start: 2016
  3. TECFIDERA [Suspect]
     Active Substance: DIMETHYL FUMARATE
     Route: 050
     Dates: start: 20210712
  4. GABAPENTIN [Concomitant]
     Active Substance: GABAPENTIN
     Dosage: TAKE 1 TABLET QHS
     Route: 050
     Dates: start: 20210430
  5. IBUPROFEN [Concomitant]
     Active Substance: IBUPROFEN
     Dosage: AS NEEDED FOR PAIN
     Route: 050
     Dates: start: 20181022
  6. METHYLPREDNISOLONE [Concomitant]
     Active Substance: METHYLPREDNISOLONE
     Route: 050
     Dates: start: 20220404
  7. TIZANIDINE [Concomitant]
     Active Substance: TIZANIDINE
     Route: 050

REACTIONS (1)
  - Product dose omission in error [Unknown]
